FAERS Safety Report 5445053-7 (Version None)
Quarter: 2007Q3

REPORT INFORMATION
  Report Type: 
  Country: None (occurrence: None)
  Receive Date: 20070906
  Receipt Date: 20070828
  Transmission Date: 20080115
  Serious: Yes (Other)
  Sender: FDA-Public Use
  Company Number: FR-PFIZER INC-2007072125

PATIENT
  Age: 39 Year
  Sex: Male

DRUGS (6)
  1. IRINOTECAN HCL [Suspect]
     Indication: COLORECTAL CANCER
     Dosage: FREQ:CYCLE OF 2 WEEKS
  2. LEUCOVORIN CALCIUM [Concomitant]
     Dosage: TEXT:2400 MG/M2 BY CYCLE-FREQ:CYCLE OF 2 WEEKS
  3. BEVACIZUMAB [Concomitant]
     Dosage: TEXT:5 MG/KG BY CYCLE-FREQ:CYCLE OF 2 WEEKS
  4. OXALIPLATIN [Concomitant]
     Dosage: TEXT:85 MG/M2 BY CYCLE-FREQ:CYCLE OF 2 WEEKS
  5. FLUOROURACIL [Concomitant]
     Dosage: TEXT:100 MG/M2 BY CYCLE-FREQ:CYCLE OF 2 WEEKS
     Dates: start: 20070109
  6. LEUCOVORIN CALCIUM [Concomitant]

REACTIONS (2)
  - DIARRHOEA [None]
  - NEUROPATHY [None]
